FAERS Safety Report 6429503-5 (Version None)
Quarter: 2009Q4

REPORT INFORMATION
  Report Type: 
  Country: None (occurrence: None)
  Receive Date: 20091105
  Receipt Date: 20090728
  Transmission Date: 20100525
  Serious: No
  Sender: FDA-Public Use
  Company Number: US-ABBOTT-09P-163-0588307-00

PATIENT
  Sex: Male
  Weight: 83.99 kg

DRUGS (5)
  1. KALETRA [Suspect]
     Indication: HIV INFECTION
     Dates: start: 20010101, end: 20090101
  2. KALETRA [Suspect]
     Dates: start: 20090501
  3. UNKNOWN MEDICATION [Interacting]
     Indication: DRUG USE FOR UNKNOWN INDICATION
  4. OXYCODONE [Concomitant]
     Indication: INTERVERTEBRAL DISC PROTRUSION
  5. UNKNOWN MEDICATION [Concomitant]
     Indication: HIV INFECTION

REACTIONS (3)
  - DRUG INTERACTION [None]
  - T-LYMPHOCYTE COUNT DECREASED [None]
  - VIRAL LOAD INCREASED [None]
